FAERS Safety Report 9226344 (Version 1)
Quarter: 2013Q2

REPORT INFORMATION
  Report Type: Spontaneous
  Country: US (occurrence: US)
  Receive Date: 20130411
  Receipt Date: 20130411
  Transmission Date: 20140414
  Serious: No
  Sender: FDA-Public Use
  Company Number: US-B.I. PHARMACEUTICALS,INC./RIDGEFIELD-2013-BI-08648BP

PATIENT
  Age: 64 Year
  Sex: Female
  Weight: 80 kg

DRUGS (11)
  1. SPIRIVA [Suspect]
     Indication: CHRONIC OBSTRUCTIVE PULMONARY DISEASE
     Dosage: 18 MCG
     Route: 055
     Dates: start: 2008
  2. SPIRIVA [Suspect]
     Route: 048
     Dates: start: 201301, end: 201301
  3. WARFARIN [Concomitant]
     Indication: ATRIAL FIBRILLATION
     Route: 048
  4. DIGOXIN [Concomitant]
     Indication: ATRIAL FIBRILLATION
     Dosage: 125 MG
     Route: 048
  5. KLOR CON 10 [Concomitant]
     Dosage: 10 MEQ
     Route: 048
  6. PROPAFENONE [Concomitant]
     Indication: ATRIAL FIBRILLATION
     Dosage: 450 MG
     Route: 048
  7. LANSOPRAZOLE [Concomitant]
     Indication: GASTROOESOPHAGEAL REFLUX DISEASE
     Dosage: 60 MG
     Route: 048
  8. METFORMIN HCL [Concomitant]
     Indication: DIABETES MELLITUS
     Dosage: 2000 MG
     Route: 048
  9. DILTIAZEM [Concomitant]
     Dosage: 240 MG
     Route: 048
  10. GLYBURIDE [Concomitant]
     Indication: DIABETES MELLITUS
     Dosage: 15 MG
     Route: 048
  11. FUROSEMIDE [Concomitant]
     Indication: JOINT SWELLING
     Dosage: 20 MG
     Route: 048

REACTIONS (3)
  - Sinusitis [Recovered/Resolved]
  - Upper-airway cough syndrome [Recovered/Resolved]
  - Incorrect route of drug administration [Recovered/Resolved]
